FAERS Safety Report 4574342-3 (Version None)
Quarter: 2005Q1

REPORT INFORMATION
  Report Type: 
  Country: None (occurrence: None)
  Receive Date: 20050204
  Receipt Date: 20050128
  Transmission Date: 20050727
  Serious: Yes (Hospitalization, Disabling, Other)
  Sender: FDA-Public Use
  Company Number: 2005022076

PATIENT
  Age: 84 Year
  Sex: Female
  Weight: 68.0396 kg

DRUGS (4)
  1. LIPITOR [Suspect]
     Indication: BLOOD CHOLESTEROL INCREASED
     Dosage: 10 MG (10 MG, 1 IN 1 D), ORAL
     Route: 048
     Dates: start: 20030701, end: 20050126
  2. NEURONTIN [Suspect]
     Indication: NEUROPATHY
  3. ACETYLSALICYLIC ACID SRT [Concomitant]
  4. ALENDRONATE SODIUM [Suspect]

REACTIONS (9)
  - CELLULITIS [None]
  - DIFFICULTY IN WALKING [None]
  - FALL [None]
  - FOOT FRACTURE [None]
  - HYPOAESTHESIA [None]
  - INTERVERTEBRAL DISC PROTRUSION [None]
  - MYALGIA [None]
  - NEUROPATHY [None]
  - WHEELCHAIR USER [None]
